FAERS Safety Report 14002869 (Version 2)
Quarter: 2017Q4

REPORT INFORMATION
  Report Type: Report from Study
  Country: GB (occurrence: GB)
  Receive Date: 20170922
  Receipt Date: 20171030
  Transmission Date: 20180321
  Serious: Yes (Hospitalization)
  Sender: FDA-Public Use
  Company Number: GB-ROCHE-1994177

PATIENT
  Age: 61 Year
  Sex: Female

DRUGS (1)
  1. BEVACIZUMAB. [Suspect]
     Active Substance: BEVACIZUMAB
     Indication: OVARIAN CANCER
     Dosage: MOST RECENT DOSE PRIOR TO THE INCISIONAL HERNIA: 19/JUN/2013
     Route: 042
     Dates: start: 20120516

REACTIONS (1)
  - Incisional hernia [Recovered/Resolved]

NARRATIVE: CASE EVENT DATE: 20130624
